FAERS Safety Report 16984972 (Version 1)
Quarter: 2019Q4

REPORT INFORMATION
  Report Type: Spontaneous
  Country: US (occurrence: US)
  Receive Date: 20191031
  Receipt Date: 20191031
  Transmission Date: 20200122
  Serious: No
  Sender: FDA-Public Use
  Company Number: None

PATIENT
  Age: 52 Year
  Sex: Female
  Weight: 54 kg

DRUGS (4)
  1. AMBIEN 5MG GHS [Concomitant]
  2. RHOPRESSA [Suspect]
     Active Substance: NETARSUDIL MESYLATE
     Indication: GLAUCOMA
     Dosage: ?          QUANTITY:1 DROP(S);?
     Route: 047
     Dates: start: 20191030, end: 20191031
  3. TIMOLOL. [Concomitant]
     Active Substance: TIMOLOL
  4. MALEATE 1GTT [Concomitant]

REACTIONS (5)
  - Instillation site erythema [None]
  - Impaired driving ability [None]
  - Vision blurred [None]
  - Visual acuity reduced [None]
  - Instillation site pain [None]

NARRATIVE: CASE EVENT DATE: 20191031
